FAERS Safety Report 17756288 (Version 1)
Quarter: 2020Q2

REPORT INFORMATION
  Report Type: Report from Study
  Country: CO (occurrence: CO)
  Receive Date: 20200507
  Receipt Date: 20200507
  Transmission Date: 20200714
  Serious: Yes (Death, Hospitalization)
  Sender: FDA-Public Use
  Company Number: NVSC2020CO123456

PATIENT
  Sex: Female

DRUGS (1)
  1. AFINITOR [Suspect]
     Active Substance: EVEROLIMUS
     Indication: PRODUCT USED FOR UNKNOWN INDICATION
     Dosage: UNK
     Route: 065

REACTIONS (5)
  - Anaemia [Unknown]
  - Laboratory test abnormal [Unknown]
  - Death [Fatal]
  - Blood creatinine abnormal [Unknown]
  - Renal failure [Unknown]

NARRATIVE: CASE EVENT DATE: 20200125
